FAERS Safety Report 9335692 (Version 1)
Quarter: 2013Q2

REPORT INFORMATION
  Report Type: Report from Study
  Country: US (occurrence: US)
  Receive Date: 20130605
  Receipt Date: 20130605
  Transmission Date: 20140414
  Serious: Yes (Other)
  Sender: FDA-Public Use
  Company Number: US-ROCHE-1232664

PATIENT
  Sex: 0

DRUGS (4)
  1. BEVACIZUMAB [Suspect]
     Indication: GLIOBLASTOMA MULTIFORME
     Dosage: DURING RADITAION THERAPY
     Route: 065
  2. BEVACIZUMAB [Suspect]
     Dosage: ONE MONTH AFTER RADIATION THERAPY.
     Route: 065
  3. TEMOZOLOMIDE [Suspect]
     Indication: GLIOBLASTOMA MULTIFORME
     Dosage: DURING RADIATION THERAPY.
     Route: 065
  4. TEMOZOLOMIDE [Suspect]
     Dosage: ONE MONTH AFTER RADIATION THERAPY.
     Route: 065

REACTIONS (1)
  - Bone marrow failure [Unknown]
